FAERS Safety Report 4818571-X (Version None)
Quarter: 2005Q4

REPORT INFORMATION
  Report Type: 
  Country: None (occurrence: None)
  Receive Date: 20051031
  Receipt Date: 20051021
  Transmission Date: 20060501
  Serious: Yes (Other)
  Sender: FDA-Public Use
  Company Number: HQWYE193824OCT05

PATIENT

DRUGS (1)
  1. CORDARONE [Suspect]

REACTIONS (2)
  - CEREBROVASCULAR ACCIDENT [None]
  - HALLUCINATION [None]
